FAERS Safety Report 4735196-5 (Version None)
Quarter: 2005Q3

REPORT INFORMATION
  Report Type: 
  Country: None (occurrence: None)
  Receive Date: 20050804
  Receipt Date: 20050711
  Transmission Date: 20060218
  Serious: Yes (Hospitalization, Other)
  Sender: FDA-Public Use
  Company Number: US_0502113393

PATIENT
  Age: 69 Year
  Sex: Female

DRUGS (8)
  1. PERMAX [Suspect]
     Indication: PARKINSON'S DISEASE
     Dosage: 1 MG/3 DAY
     Dates: start: 20001208, end: 20030226
  2. SYNTHROID [Concomitant]
  3. SINEMET [Concomitant]
  4. COMTAN [Concomitant]
  5. NOLVADEX [Concomitant]
  6. ZOLOFT [Concomitant]
  7. RISPERIDONE [Concomitant]
  8. AMANTADINE [Concomitant]

REACTIONS (24)
  - AORTIC ATHEROSCLEROSIS [None]
  - AORTIC VALVE INCOMPETENCE [None]
  - ARTHRALGIA [None]
  - CARDIAC FAILURE CONGESTIVE [None]
  - CARDIAC VALVE DISEASE [None]
  - CARDIOMEGALY [None]
  - CEREBROVASCULAR ACCIDENT [None]
  - CONDITION AGGRAVATED [None]
  - DIVERTICULUM [None]
  - FATIGUE [None]
  - HYPERLIPIDAEMIA [None]
  - MITRAL VALVE INCOMPETENCE [None]
  - OEDEMA [None]
  - OSTEOPOROSIS [None]
  - OVERWEIGHT [None]
  - PARKINSON'S DISEASE [None]
  - PERICARDITIS [None]
  - PLEURAL EFFUSION [None]
  - POST PROCEDURAL COMPLICATION [None]
  - PULMONARY HYPERTENSION [None]
  - PULMONARY OEDEMA [None]
  - RHEUMATIC HEART DISEASE [None]
  - STRESS [None]
  - TRICUSPID VALVE INCOMPETENCE [None]
